FAERS Safety Report 5447669-0 (Version None)
Quarter: 2007Q3

REPORT INFORMATION
  Report Type: 
  Country: None (occurrence: None)
  Receive Date: 20070906
  Receipt Date: 20070906
  Transmission Date: 20080115
  Serious: Yes (Hospitalization)
  Sender: FDA-Public Use
  Company Number: None

PATIENT
  Sex: Female
  Weight: 83.9 kg

DRUGS (14)
  1. CARBOPLATIN [Suspect]
     Indication: BREAST CANCER
     Dosage: 2 AUC WEEKLY IV
     Route: 042
     Dates: start: 20070626, end: 20070822
  2. CETUXIMAB [Suspect]
     Indication: BREAST CANCER
     Dosage: 250 MG/M2 WEEKLY IV
     Route: 042
     Dates: start: 20070626, end: 20070822
  3. MAX-OXIDE [Concomitant]
  4. TRAZODONE HCL [Concomitant]
  5. PHENAGAN [Concomitant]
  6. ORDANSETRON [Concomitant]
  7. LYNEA [Concomitant]
  8. MS CONTIN [Concomitant]
  9. MSIR [Concomitant]
  10. HYDROMORPHONE HCL [Concomitant]
  11. SENNA [Concomitant]
  12. COLACE [Concomitant]
  13. MINOCYCLINE HCL [Concomitant]
  14. COUMADIN [Concomitant]

REACTIONS (4)
  - CHEST PAIN [None]
  - DISEASE PROGRESSION [None]
  - DYSPNOEA [None]
  - PAIN IN EXTREMITY [None]
